FAERS Safety Report 8060991-7 (Version None)
Quarter: 2012Q1

REPORT INFORMATION
  Report Type: 
  Country: None (occurrence: None)
  Receive Date: 20120120
  Receipt Date: 20120110
  Transmission Date: 20120608
  Serious: Yes (Other)
  Sender: FDA-Public Use
  Company Number: US-MERCK-1201USA01165

PATIENT
  Age: 61 Year
  Sex: Female

DRUGS (8)
  1. SINEMET [Suspect]
     Indication: TREMOR
     Route: 048
     Dates: start: 20110601
  2. FOLIC ACID [Concomitant]
     Indication: ARTHRITIS
     Route: 065
  3. HUMIRA [Suspect]
     Indication: ARTHRITIS
     Route: 058
     Dates: start: 20081003, end: 20090701
  4. METHOTREXATE SODIUM [Concomitant]
     Indication: ARTHRITIS
     Route: 065
  5. ARAVA [Concomitant]
     Route: 065
  6. HUMIRA [Suspect]
     Route: 058
     Dates: start: 20111130
  7. KAPSOVIT [Concomitant]
     Indication: VITAMIN SUPPLEMENTATION
     Route: 065
  8. PREDNISONE ACETATE [Concomitant]
     Route: 065

REACTIONS (5)
  - FEELING JITTERY [None]
  - NEUROPATHY PERIPHERAL [None]
  - BLOOD TEST ABNORMAL [None]
  - INJECTION SITE PAIN [None]
  - WEIGHT DECREASED [None]
